FAERS Safety Report 16204029 (Version 1)
Quarter: 2019Q2

REPORT INFORMATION
  Report Type: Spontaneous
  Country: US (occurrence: US)
  Receive Date: 20190416
  Receipt Date: 20190416
  Transmission Date: 20190711
  Serious: Yes (Other)
  Sender: FDA-Public Use
  Company Number: US-ASTRAZENECA-2019SE55336

PATIENT
  Sex: Female

DRUGS (1)
  1. EXENATIDE. [Suspect]
     Active Substance: EXENATIDE
     Route: 065

REACTIONS (1)
  - Anaphylactic reaction [Unknown]
